FAERS Safety Report 6477423-2 (Version None)
Quarter: 2009Q4

REPORT INFORMATION
  Report Type: 
  Country: None (occurrence: None)
  Receive Date: 20091207
  Receipt Date: 20091111
  Transmission Date: 20100525
  Serious: Yes (Disabling, Other)
  Sender: FDA-Public Use
  Company Number: GB-SANOFI-AVENTIS-200922055GDDC

PATIENT
  Age: 57 Year
  Sex: Female
  Weight: 53 kg

DRUGS (11)
  1. DOCETAXEL [Suspect]
     Dosage: DOSE AS USED: UNK
     Route: 042
     Dates: start: 20091009, end: 20091009
  2. DOCETAXEL [Suspect]
     Dosage: DOSE AS USED: UNK
     Route: 042
     Dates: start: 20091009, end: 20091009
  3. DOCETAXEL [Suspect]
     Route: 042
     Dates: start: 20090918, end: 20090918
  4. DOCETAXEL [Suspect]
     Route: 042
     Dates: start: 20090918, end: 20090918
  5. DOCETAXEL [Suspect]
     Route: 042
     Dates: start: 20090828, end: 20090828
  6. DOCETAXEL [Suspect]
     Route: 042
     Dates: start: 20090828, end: 20090828
  7. DOCETAXEL [Suspect]
     Route: 042
     Dates: start: 20090807, end: 20090807
  8. DOCETAXEL [Suspect]
     Route: 042
     Dates: start: 20090807, end: 20090807
  9. ZOMETA [Concomitant]
     Route: 042
     Dates: start: 20071025
  10. TRASTUZUMAB [Concomitant]
     Route: 042
     Dates: start: 20080118
  11. CALCICHEW [Concomitant]
     Dosage: 1 TAB DAILY
     Route: 048
     Dates: start: 20071025

REACTIONS (5)
  - CONDITION AGGRAVATED [None]
  - ERYTHEMA [None]
  - PRURITUS GENERALISED [None]
  - PSORIASIS [None]
  - SKIN EXFOLIATION [None]
